FAERS Safety Report 21365117 (Version 1)
Quarter: 2022Q3

REPORT INFORMATION
  Report Type: Spontaneous
  Country: FR (occurrence: FR)
  Receive Date: 20220922
  Receipt Date: 20220922
  Transmission Date: 20221027
  Serious: Yes (Life-Threatening, Hospitalization, Other)
  Sender: FDA-Public Use
  Company Number: None

PATIENT
  Age: 15 Year
  Sex: Male

DRUGS (3)
  1. OFIRMEV [Suspect]
     Active Substance: ACETAMINOPHEN
     Indication: Renal colic
     Dosage: 870 MILLIGRAM
     Route: 042
     Dates: start: 20220810, end: 20220811
  2. MORPHINE [Suspect]
     Active Substance: MORPHINE
     Indication: Renal colic
     Dosage: 36 MILLIGRAM
     Route: 042
     Dates: start: 20220810, end: 20220811
  3. KETOPROFEN [Suspect]
     Active Substance: KETOPROFEN
     Indication: Renal colic
     Dosage: 100 MILLIGRAM
     Route: 042
     Dates: start: 20220810, end: 20220811

REACTIONS (1)
  - Angioedema [Recovering/Resolving]

NARRATIVE: CASE EVENT DATE: 20220811
